FAERS Safety Report 11364349 (Version 2)
Quarter: 2015Q4

REPORT INFORMATION
  Report Type: Spontaneous
  Country: US (occurrence: US)
  Receive Date: 20150811
  Receipt Date: 20151014
  Transmission Date: 20160304
  Serious: Yes (Hospitalization)
  Sender: FDA-Public Use
  Company Number: US-KERYX BIOPHARMACEUTICALS, INC.-2015US001052

PATIENT

DRUGS (2)
  1. AURYXIA [Suspect]
     Active Substance: TETRAFERRIC TRICITRATE DECAHYDRATE
     Indication: TRANSFERRIN SATURATION INCREASED
  2. AURYXIA [Suspect]
     Active Substance: TETRAFERRIC TRICITRATE DECAHYDRATE
     Indication: BLOOD PHOSPHORUS INCREASED
     Dosage: 210, 2 TABS TID WITH MEALS
     Route: 048
     Dates: start: 20150723

REACTIONS (5)
  - Gastrointestinal haemorrhage [Recovered/Resolved]
  - Faeces discoloured [Not Recovered/Not Resolved]
  - Occult blood positive [Not Recovered/Not Resolved]
  - Intentional product use issue [Unknown]
  - Haemoglobin increased [Not Recovered/Not Resolved]

NARRATIVE: CASE EVENT DATE: 20150605
